FAERS Safety Report 15555578 (Version 2)
Quarter: 2018Q4

REPORT INFORMATION
  Report Type: Spontaneous
  Country: DZ (occurrence: DZ)
  Receive Date: 20181026
  Receipt Date: 20181116
  Transmission Date: 20190205
  Serious: Yes (Other)
  Sender: FDA-Public Use
  Company Number: DZ-BIOVITRUM-2018DZ1241

PATIENT
  Sex: Female

DRUGS (1)
  1. ORFADIN [Suspect]
     Active Substance: NITISINONE
     Indication: TYROSINAEMIA
     Dates: start: 200506

REACTIONS (3)
  - Nervous system disorder [Unknown]
  - Epilepsy [Unknown]
  - Mental disorder [Unknown]

NARRATIVE: CASE EVENT DATE: 201805
